FAERS Safety Report 5897566-1 (Version None)
Quarter: 2008Q3

REPORT INFORMATION
  Report Type: 
  Country: None (occurrence: None)
  Receive Date: 20080925
  Receipt Date: 20080924
  Transmission Date: 20090109
  Serious: Yes (Death, Other)
  Sender: FDA-Public Use
  Company Number: US-CELGENEUS-163-21880-08070663

PATIENT
  Sex: Male

DRUGS (2)
  1. REVLIMID [Suspect]
     Indication: MULTIPLE MYELOMA
     Route: 048
     Dates: start: 20080514, end: 20080501
  2. REVLIMID [Suspect]
     Route: 048
     Dates: start: 20080320, end: 20080401

REACTIONS (3)
  - HEPATIC MASS [None]
  - MULTIPLE MYELOMA [None]
  - THROMBOCYTOPENIA [None]
